FAERS Safety Report 6439255-0 (Version None)
Quarter: 2009Q4

REPORT INFORMATION
  Report Type: 
  Country: None (occurrence: None)
  Receive Date: 20091113
  Receipt Date: 20091102
  Transmission Date: 20100525
  Serious: Yes (Hospitalization)
  Sender: FDA-Public Use
  Company Number: DE-PFIZER INC-2009291612

PATIENT
  Age: 22 Year
  Sex: Male
  Weight: 80 kg

DRUGS (3)
  1. DOXEPIN HCL [Suspect]
     Dosage: 50 MG, 30 TABLETS
     Route: 048
     Dates: start: 20090918, end: 20090918
  2. LORAZEPAM [Suspect]
     Dosage: 0.5 MG, 6 TABLETS
     Route: 048
     Dates: start: 20090918, end: 20090918
  3. VENLAFAXINE HCL [Suspect]
     Dosage: 75 MG, 20 CAPSULES
     Route: 048
     Dates: start: 20090918, end: 20090918

REACTIONS (3)
  - COMA [None]
  - INTENTIONAL OVERDOSE [None]
  - SUICIDE ATTEMPT [None]
